FAERS Safety Report 21655985 (Version 3)
Quarter: 2023Q1

REPORT INFORMATION
  Report Type: Report from Study
  Country: US (occurrence: US)
  Receive Date: 20221129
  Receipt Date: 20230308
  Transmission Date: 20230418
  Serious: Yes (Other)
  Sender: FDA-Public Use
  Company Number: US-ABBVIE-4216623

PATIENT
  Age: 72 Year
  Sex: Male

DRUGS (1)
  1. IMBRUVICA [Suspect]
     Active Substance: IBRUTINIB
     Indication: Chronic lymphocytic leukaemia
     Route: 048
     Dates: start: 201804

REACTIONS (7)
  - Heart rate decreased [Unknown]
  - Respiratory syncytial virus infection [Unknown]
  - Respiratory disorder [Recovered/Resolved]
  - Epistaxis [Unknown]
  - Rotavirus infection [Unknown]
  - Influenza [Unknown]
  - Hypertension [Unknown]

NARRATIVE: CASE EVENT DATE: 20230101
